FAERS Safety Report 4415026-1 (Version None)
Quarter: 2004Q3

REPORT INFORMATION
  Report Type: 
  Country: None (occurrence: None)
  Receive Date: 20040803
  Receipt Date: 20040803
  Transmission Date: 20050211
  Serious: No
  Sender: FDA-Public Use
  Company Number: None

PATIENT
  Age: 40 Year
  Sex: Female
  Weight: 113.3993 kg

DRUGS (1)
  1. PAXIL [Suspect]
     Indication: DEPRESSION
     Dosage: TAPERED TO 10 MG PER DAY

REACTIONS (9)
  - ALOPECIA [None]
  - ANGER [None]
  - ANXIETY [None]
  - DIZZINESS [None]
  - FEAR [None]
  - HALLUCINATION [None]
  - HEADACHE [None]
  - MALAISE [None]
  - VISUAL DISTURBANCE [None]
